FAERS Safety Report 16811572 (Version 1)
Quarter: 2019Q3

REPORT INFORMATION
  Report Type: Spontaneous
  Country: US (occurrence: US)
  Receive Date: 20190916
  Receipt Date: 20190916
  Transmission Date: 20191005
  Serious: No
  Sender: FDA-Public Use
  Company Number: US-SA-2019SA256638

PATIENT
  Sex: Female

DRUGS (1)
  1. KEVZARA [Suspect]
     Active Substance: SARILUMAB
     Indication: ARTHROPATHY
     Dosage: 200 MG, QOW
     Route: 058
     Dates: start: 20190821

REACTIONS (1)
  - Drug ineffective [Unknown]
